FAERS Safety Report 23760647 (Version 1)
Quarter: 2024Q2

REPORT INFORMATION
  Report Type: Spontaneous
  Country: JP (occurrence: JP)
  Receive Date: 20240419
  Receipt Date: 20240419
  Transmission Date: 20240715
  Serious: Yes (Death, Other)
  Sender: FDA-Public Use
  Company Number: JP-GILEAD-2024-0669711

PATIENT
  Age: 72 Year
  Sex: Male

DRUGS (5)
  1. VEKLURY [Suspect]
     Active Substance: REMDESIVIR
     Indication: COVID-19 pneumonia
     Dosage: UNK
     Route: 065
  2. CEFTRIAXONE SODIUM [Concomitant]
     Active Substance: CEFTRIAXONE SODIUM
     Indication: COVID-19 pneumonia
  3. METHYLPREDNISOLONE [Concomitant]
     Active Substance: METHYLPREDNISOLONE
     Indication: COVID-19 pneumonia
  4. LEVOFLOXACIN HEMIHYDRATE [Concomitant]
     Active Substance: LEVOFLOXACIN
     Indication: COVID-19 pneumonia
  5. BARICITINIB [Concomitant]
     Active Substance: BARICITINIB
     Indication: COVID-19 pneumonia
     Dosage: UNK

REACTIONS (5)
  - Death [Fatal]
  - Acute respiratory distress syndrome [Unknown]
  - Stenotrophomonas infection [Unknown]
  - Lung infiltration [Unknown]
  - Fungal infection [Unknown]
